FAERS Safety Report 18385821 (Version 13)
Quarter: 2021Q4

REPORT INFORMATION
  Report Type: Report from Study
  Country: CA (occurrence: CA)
  Receive Date: 20201015
  Receipt Date: 20211012
  Transmission Date: 20220303
  Serious: Yes (Other)
  Sender: FDA-Public Use
  Company Number: CA-BRISTOL-MYERS SQUIBB COMPANY-BMS-2020-074554

PATIENT
  Age: 67 Year
  Sex: Male
  Weight: 71 kg

DRUGS (2)
  1. ABATACEPT [Suspect]
     Active Substance: ABATACEPT
     Indication: Rheumatoid arthritis
     Dosage: 750 MILLIGRAM, Q4WK
     Route: 042
     Dates: start: 20110913
  2. ABATACEPT [Suspect]
     Active Substance: ABATACEPT
     Dosage: 750 MILLIGRAM, Q4WK
     Route: 042

REACTIONS (12)
  - Heart rate increased [Unknown]
  - Blood pressure systolic increased [Unknown]
  - Stress [Unknown]
  - Migraine [Unknown]
  - Disturbance in attention [Unknown]
  - Off label use [Unknown]
  - Weight decreased [Not Recovered/Not Resolved]
  - Weight increased [Unknown]
  - Osteoarthritis [Not Recovered/Not Resolved]
  - Pain in extremity [Not Recovered/Not Resolved]
  - Arthralgia [Not Recovered/Not Resolved]
  - Eye pain [Unknown]

NARRATIVE: CASE EVENT DATE: 20200909
